FAERS Safety Report 25912913 (Version 1)
Quarter: 2025Q4

REPORT INFORMATION
  Report Type: Spontaneous
  Country: US (occurrence: US)
  Receive Date: 20251013
  Receipt Date: 20251013
  Transmission Date: 20260118
  Serious: Yes (Other)
  Sender: MACLEODS
  Company Number: US-MLMSERVICE-20251003-PI660847-00275-3

PATIENT

DRUGS (16)
  1. QUETIAPINE [Suspect]
     Active Substance: QUETIAPINE
     Indication: Apathy
     Route: 048
  2. QUETIAPINE [Suspect]
     Active Substance: QUETIAPINE
     Indication: Dysphoria
  3. QUETIAPINE [Suspect]
     Active Substance: QUETIAPINE
     Indication: Dysphoria
  4. QUETIAPINE [Suspect]
     Active Substance: QUETIAPINE
     Indication: Dysphoria
  5. QUETIAPINE [Suspect]
     Active Substance: QUETIAPINE
     Indication: Apathy
  6. QUETIAPINE [Suspect]
     Active Substance: QUETIAPINE
     Indication: Dysphoria
  7. QUETIAPINE [Suspect]
     Active Substance: QUETIAPINE
     Indication: Dysphoria
  8. QUETIAPINE [Suspect]
     Active Substance: QUETIAPINE
     Indication: Dysphoria
  9. SERTRALINE [Suspect]
     Active Substance: SERTRALINE HYDROCHLORIDE
     Indication: Apathy
     Route: 065
  10. SERTRALINE [Suspect]
     Active Substance: SERTRALINE HYDROCHLORIDE
     Indication: Dysphoria
  11. SERTRALINE [Suspect]
     Active Substance: SERTRALINE HYDROCHLORIDE
     Indication: Dysphoria
  12. SERTRALINE [Suspect]
     Active Substance: SERTRALINE HYDROCHLORIDE
     Indication: Dysphoria
  13. SERTRALINE [Suspect]
     Active Substance: SERTRALINE HYDROCHLORIDE
     Indication: Dysphoria
  14. SERTRALINE [Suspect]
     Active Substance: SERTRALINE HYDROCHLORIDE
     Indication: Apathy
  15. SERTRALINE [Suspect]
     Active Substance: SERTRALINE HYDROCHLORIDE
     Indication: Apathy
  16. THYROID PORK ARMOUR [Concomitant]
     Indication: Hypothyroidism
     Route: 065

REACTIONS (1)
  - Hallucination, visual [Unknown]
